FAERS Safety Report 5394786-X (Version None)
Quarter: 2007Q3

REPORT INFORMATION
  Report Type: 
  Country: None (occurrence: None)
  Receive Date: 20070723
  Receipt Date: 20070712
  Transmission Date: 20080115
  Serious: Yes (Other)
  Sender: FDA-Public Use
  Company Number: CA-PFIZER INC-2007058483

PATIENT
  Sex: Female
  Weight: 97.727 kg

DRUGS (3)
  1. LYRICA [Suspect]
     Indication: INTERVERTEBRAL DISC PROTRUSION
     Dates: start: 20061001, end: 20070709
  2. LYRICA [Suspect]
     Indication: SCIATICA
  3. METFORMIN HCL [Concomitant]

REACTIONS (3)
  - ACTIVITIES OF DAILY LIVING IMPAIRED [None]
  - GAIT DISTURBANCE [None]
  - OEDEMA PERIPHERAL [None]
